FAERS Safety Report 22141706 (Version 1)
Quarter: 2023Q1

REPORT INFORMATION
  Report Type: Spontaneous
  Country: US (occurrence: US)
  Receive Date: 20230327
  Receipt Date: 20230327
  Transmission Date: 20230417
  Serious: No
  Sender: FDA-Public Use
  Company Number: US-PFIZER INC-PV202300051288

PATIENT
  Age: 2 Year
  Sex: Male

DRUGS (4)
  1. EUCRISA [Suspect]
     Active Substance: CRISABOROLE
     Indication: Skin exfoliation
     Dosage: UNK UNK, AS NEEDED [EUCRISA 2%, BID (TWO TIMES A DAY) PRN (AS NEEDED)]
     Route: 061
  2. EUCRISA [Suspect]
     Active Substance: CRISABOROLE
     Indication: Swelling face
  3. EUCRISA [Suspect]
     Active Substance: CRISABOROLE
     Indication: Inflammation
  4. EUCRISA [Suspect]
     Active Substance: CRISABOROLE
     Indication: Dermatitis atopic

REACTIONS (1)
  - Burning sensation [Unknown]
